FAERS Safety Report 8014575-7 (Version None)
Quarter: 2011Q4

REPORT INFORMATION
  Report Type: 
  Country: None (occurrence: None)
  Receive Date: 20111229
  Receipt Date: 20111227
  Transmission Date: 20120403
  Serious: Yes (Hospitalization, Disabling, Other)
  Sender: FDA-Public Use
  Company Number: PHHY2011DE40549

PATIENT
  Sex: Female

DRUGS (4)
  1. TASIGNA [Suspect]
     Dosage: 300 MG, BID
     Route: 048
     Dates: start: 20090505, end: 20110511
  2. SIMVASTATIN [Concomitant]
  3. TASIGNA [Suspect]
     Indication: CHRONIC MYELOID LEUKAEMIA
     Dosage: 400 MG, BID
     Route: 048
     Dates: start: 20070623, end: 20090505
  4. ASPIRIN [Concomitant]

REACTIONS (4)
  - ARTERIOSCLEROTIC RETINOPATHY [None]
  - BLINDNESS [None]
  - OPTIC ISCHAEMIC NEUROPATHY [None]
  - ARTERIOSCLEROSIS [None]
